FAERS Safety Report 9407554 (Version 2)
Quarter: 2013Q3

REPORT INFORMATION
  Report Type: Spontaneous
  Country: DK (occurrence: DK)
  Receive Date: 20130718
  Receipt Date: 20130725
  Transmission Date: 20140515
  Serious: Yes (Other)
  Sender: FDA-Public Use
  Company Number: DK-TEVA-418721ISR

PATIENT
  Age: 62 Year
  Sex: Female

DRUGS (12)
  1. METHOTREXATE [Suspect]
     Indication: RHEUMATOID ARTHRITIS
     Dosage: TABLETS UNTIL 2005 AND THEREAFTER VIA INJECTION
     Dates: start: 1996
  2. ALENDRONATE [Concomitant]
  3. CALCICHEW [Concomitant]
  4. FOLIMET [Concomitant]
  5. AMLODIPIN [Concomitant]
  6. CORODIL [Concomitant]
  7. ANCOZAN [Concomitant]
  8. CITALOPRAM [Concomitant]
  9. VAGIFEM [Concomitant]
  10. CODEINE [Concomitant]
  11. DEXOFAN [Concomitant]
  12. REMICADE [Concomitant]
     Dates: start: 2005

REACTIONS (2)
  - Bronchiectasis [Unknown]
  - Cough [Unknown]
